FAERS Safety Report 24167585 (Version 1)
Quarter: 2024Q3

REPORT INFORMATION
  Report Type: Spontaneous
  Country: US (occurrence: US)
  Receive Date: 20240802
  Receipt Date: 20240802
  Transmission Date: 20241017
  Serious: Yes (Other)
  Sender: HRA PHARMA
  Company Number: US-ORG100014127-2024000213

PATIENT
  Sex: Female
  Weight: 0.65 kg

DRUGS (1)
  1. METYRAPONE [Suspect]
     Active Substance: METYRAPONE
     Indication: Exposure during pregnancy
     Route: 064

REACTIONS (3)
  - Premature baby [Recovered/Resolved]
  - Low birth weight baby [Unknown]
  - Maternal exposure during pregnancy [Recovered/Resolved]
